FAERS Safety Report 7191000-X (Version None)
Quarter: 2010Q4

REPORT INFORMATION
  Report Type: 
  Country: None (occurrence: None)
  Receive Date: 20101221
  Receipt Date: 20101221
  Transmission Date: 20110411
  Serious: Yes (Other)
  Sender: FDA-Public Use
  Company Number: None

PATIENT
  Age: 9 Day
  Sex: Male
  Weight: 41.2773 kg

DRUGS (1)
  1. VANTIN [Suspect]
     Indication: PHARYNGITIS STREPTOCOCCAL
     Dosage: 200MG 2 TIMES DAILY PO
     Route: 048
     Dates: start: 20101208, end: 20101217

REACTIONS (7)
  - ABDOMINAL PAIN [None]
  - ABNORMAL DREAMS [None]
  - CRYING [None]
  - DIARRHOEA HAEMORRHAGIC [None]
  - NIGHTMARE [None]
  - PYREXIA [None]
  - SOMNAMBULISM [None]
